FAERS Safety Report 7065516-0 (Version None)
Quarter: 2010Q4

REPORT INFORMATION
  Report Type: 
  Country: None (occurrence: None)
  Receive Date: 20101019
  Receipt Date: 20101004
  Transmission Date: 20110411
  Serious: Yes (Hospitalization)
  Sender: FDA-Public Use
  Company Number: 020026

PATIENT
  Sex: Male
  Weight: 76.6579 kg

DRUGS (1)
  1. KEPPRA [Suspect]
     Indication: CRANIOTOMY
     Dosage: HIGHER DOSE, 100 MG TID, WEANING OFF TO LOWER DOSE, 1000 MG TID, 100 MG TID

REACTIONS (12)
  - BALANCE DISORDER [None]
  - DEHYDRATION [None]
  - DRUG DISPENSING ERROR [None]
  - GAIT DISTURBANCE [None]
  - GASTROINTESTINAL TUBE INSERTION [None]
  - INCORRECT DOSE ADMINISTERED [None]
  - MENTAL IMPAIRMENT [None]
  - MUSCULAR WEAKNESS [None]
  - SALIVARY HYPERSECRETION [None]
  - SEPSIS [None]
  - URINARY TRACT INFECTION [None]
  - VENA CAVA FILTER INSERTION [None]
